FAERS Safety Report 12720618 (Version 1)
Quarter: 2016Q3

REPORT INFORMATION
  Report Type: Report from Study
  Country: JP (occurrence: JP)
  Receive Date: 20160907
  Receipt Date: 20160907
  Transmission Date: 20161109
  Serious: Yes (Other)
  Sender: FDA-Public Use
  Company Number: JP-ASTELLAS-2008JP005360

PATIENT
  Age: 56 Year
  Sex: Female
  Weight: 54 kg

DRUGS (38)
  1. TACROLIMUS. [Suspect]
     Active Substance: TACROLIMUS
     Indication: LUPUS NEPHRITIS
     Route: 048
     Dates: start: 20070608
  2. RINDERON                           /00008501/ [Suspect]
     Active Substance: BETAMETHASONE
     Indication: LUPUS NEPHRITIS
     Route: 048
     Dates: end: 20071014
  3. RINDERON                           /00008501/ [Suspect]
     Active Substance: BETAMETHASONE
     Dosage: UNK UNK, UNKNOWN FREQ.
     Route: 048
     Dates: start: 20071015, end: 20080207
  4. LIPITOR [Concomitant]
     Active Substance: ATORVASTATIN CALCIUM
     Indication: HYPERLIPIDAEMIA
     Route: 048
  5. SOLITA-T1 [Concomitant]
     Indication: GASTROENTERITIS
     Route: 065
     Dates: start: 20070714, end: 20070714
  6. ISOTONIC SODIUM CHLORIDE SOLUTION [Concomitant]
     Active Substance: SODIUM CHLORIDE
     Indication: GASTROENTERITIS
     Route: 065
     Dates: start: 20070714, end: 20070714
  7. RINDERON                           /00008501/ [Suspect]
     Active Substance: BETAMETHASONE
     Route: 048
     Dates: start: 20080207, end: 20120207
  8. LASIX [Concomitant]
     Active Substance: FUROSEMIDE
     Route: 048
     Dates: start: 20101126
  9. ZITHROMAC [Concomitant]
     Active Substance: AZITHROMYCIN DIHYDRATE
     Indication: PHARYNGITIS
     Route: 048
     Dates: start: 20070622, end: 20070624
  10. WARFARIN [Concomitant]
     Active Substance: WARFARIN
     Indication: OEDEMA PERIPHERAL
     Route: 048
     Dates: start: 20101126, end: 20101212
  11. MIZORIBINE [Concomitant]
     Active Substance: MIZORIBINE
     Indication: LUPUS NEPHRITIS
     Dosage: UNK UNK, UNKNOWN FREQ.
     Route: 065
  12. BUSCOPAN [Concomitant]
     Active Substance: BUTYLSCOPOLAMINE BROMIDE
     Indication: GASTROENTERITIS
     Route: 065
     Dates: start: 20070714, end: 20070716
  13. RINDERON                           /00008501/ [Suspect]
     Active Substance: BETAMETHASONE
     Dosage: 0.50 MG, ONCE DAILY
     Route: 048
     Dates: start: 20160223
  14. PREDONINE [Concomitant]
     Active Substance: PREDNISOLONE\PREDNISOLONE ACETATE\PREDNISOLONE SODIUM SUCCINATE
     Indication: LUPUS NEPHRITIS
     Route: 065
     Dates: start: 20070714, end: 20070714
  15. AMARYL [Concomitant]
     Active Substance: GLIMEPIRIDE
     Route: 048
     Dates: start: 20110122
  16. BUSCOPAN [Concomitant]
     Active Substance: BUTYLSCOPOLAMINE BROMIDE
     Indication: GASTROENTERITIS
     Route: 065
     Dates: start: 20070714, end: 20070714
  17. RINDERON                           /00008501/ [Suspect]
     Active Substance: BETAMETHASONE
     Dosage: UNK UNK, UNKNOWN FREQ.
     Route: 048
     Dates: start: 20120208, end: 20120613
  18. PERSANTIN [Concomitant]
     Active Substance: DIPYRIDAMOLE
     Indication: LUPUS NEPHRITIS
     Route: 048
  19. ULCERLMIN [Concomitant]
     Active Substance: SUCRALFATE
     Indication: PROPHYLAXIS
     Route: 048
  20. BENET [Concomitant]
     Active Substance: RISEDRONATE SODIUM
     Indication: OSTEOPOROSIS
     Route: 048
  21. WARFARIN [Concomitant]
     Active Substance: WARFARIN
     Route: 048
     Dates: start: 20140704, end: 20151208
  22. NELBIS [Concomitant]
     Active Substance: METFORMIN HYDROCHLORIDE
     Indication: GLUCOSE TOLERANCE IMPAIRED
     Route: 048
     Dates: start: 20110709
  23. NAUZELIN [Concomitant]
     Active Substance: DOMPERIDONE
     Indication: GASTROENTERITIS
     Route: 065
     Dates: start: 20070714, end: 20070716
  24. CRAVIT [Concomitant]
     Active Substance: LEVOFLOXACIN
     Indication: CELLULITIS
     Route: 048
     Dates: start: 20100918, end: 20100921
  25. RINDERON                           /00008501/ [Suspect]
     Active Substance: BETAMETHASONE
     Dosage: UNK UNK, UNKNOWN FREQ.
     Route: 048
     Dates: start: 20140314, end: 20160222
  26. NORVASC [Concomitant]
     Active Substance: AMLODIPINE BESYLATE
     Indication: HYPERTENSION
     Route: 048
     Dates: start: 20100609
  27. WARFARIN [Concomitant]
     Active Substance: WARFARIN
     Route: 048
     Dates: start: 20101213, end: 20140703
  28. ROCEPHIN [Concomitant]
     Active Substance: CEFTRIAXONE SODIUM
     Indication: CELLULITIS
     Dosage: 1 G SET, ONCE DAILY
     Route: 041
     Dates: start: 20100918, end: 20100918
  29. JANUVIA [Concomitant]
     Active Substance: SITAGLIPTIN PHOSPHATE
     Indication: GLUCOSE TOLERANCE IMPAIRED
     Route: 048
     Dates: start: 20101007, end: 20120207
  30. LASIX [Concomitant]
     Active Substance: FUROSEMIDE
     Indication: LUPUS NEPHRITIS
     Route: 048
     Dates: end: 20101125
  31. LASIX [Concomitant]
     Active Substance: FUROSEMIDE
     Route: 048
  32. PL GRAN. [Concomitant]
     Active Substance: UNSPECIFIED INGREDIENT
     Indication: PHARYNGITIS
     Route: 048
     Dates: start: 20070622, end: 20070628
  33. AMARYL [Concomitant]
     Active Substance: GLIMEPIRIDE
     Indication: GLUCOSE TOLERANCE IMPAIRED
     Route: 048
     Dates: start: 20090409, end: 20110121
  34. RINDERON                           /00008501/ [Suspect]
     Active Substance: BETAMETHASONE
     Dosage: 0.75 MG, ONCE DAILY
     Route: 048
     Dates: start: 20120614, end: 20140313
  35. GASTER [Concomitant]
     Active Substance: FAMOTIDINE
     Indication: PROPHYLAXIS
     Route: 048
  36. COVERSYL [Concomitant]
     Active Substance: PERINDOPRIL
     Indication: HYPERTENSION
     Route: 048
     Dates: start: 20100109
  37. NESINA [Concomitant]
     Active Substance: ALOGLIPTIN BENZOATE
     Indication: GLUCOSE TOLERANCE IMPAIRED
     Route: 048
     Dates: start: 20120208
  38. ROCEPHIN [Concomitant]
     Active Substance: CEFTRIAXONE SODIUM
     Route: 041
     Dates: start: 20100921, end: 20100921

REACTIONS (7)
  - Gastroenteritis [Recovered/Resolved]
  - Pharyngitis [Recovered/Resolved]
  - Cellulitis [Recovered/Resolved]
  - Glucose tolerance impaired [Not Recovered/Not Resolved]
  - Hypertension [Not Recovered/Not Resolved]
  - Oedema peripheral [Not Recovered/Not Resolved]
  - Hyperuricaemia [Not Recovered/Not Resolved]

NARRATIVE: CASE EVENT DATE: 20070622
